FAERS Safety Report 14970310 (Version 1)
Quarter: 2018Q2

REPORT INFORMATION
  Report Type: Spontaneous
  Country: NZ (occurrence: NZ)
  Receive Date: 20180604
  Receipt Date: 20180604
  Transmission Date: 20180711
  Serious: Yes (Other)
  Sender: FDA-Public Use
  Company Number: NZ-MYLANLABS-2018M1035760

PATIENT
  Sex: Female

DRUGS (1)
  1. ENLAFAX XR [Suspect]
     Active Substance: VENLAFAXINE HYDROCHLORIDE
     Indication: PRODUCT USED FOR UNKNOWN INDICATION
     Dosage: UNK
     Route: 048
     Dates: start: 201705

REACTIONS (4)
  - Suicidal ideation [Unknown]
  - Weight increased [Unknown]
  - Cerebral disorder [Unknown]
  - Apathy [Unknown]

NARRATIVE: CASE EVENT DATE: 201705
